FAERS Safety Report 14204324 (Version 5)
Quarter: 2024Q4

REPORT INFORMATION
  Report Type: Spontaneous
  Country: FR (occurrence: FR)
  Receive Date: 20171120
  Receipt Date: 20241018
  Transmission Date: 20250115
  Serious: Yes (Life-Threatening, Hospitalization)
  Sender: NOVARTIS
  Company Number: PHHY2017FR170671

PATIENT
  Age: 43 Year
  Sex: Male
  Weight: 63 kg

DRUGS (14)
  1. TAFINLAR [Suspect]
     Active Substance: DABRAFENIB MESYLATE
     Indication: Malignant melanoma
     Dosage: 4 DF, QD
     Route: 048
     Dates: start: 20171031, end: 20171111
  2. TAFINLAR [Suspect]
     Active Substance: DABRAFENIB MESYLATE
     Dosage: UNK (HALF DOSE)
     Route: 048
  3. TAFINLAR [Suspect]
     Active Substance: DABRAFENIB MESYLATE
     Dosage: 2 DF, UNK
     Route: 048
     Dates: start: 20171031, end: 20171113
  4. MEKINIST [Suspect]
     Active Substance: TRAMETINIB DIMETHYL SULFOXIDE
     Indication: Malignant melanoma
     Dosage: 2 MG, QD
     Route: 048
     Dates: start: 20171031, end: 20171111
  5. MEKINIST [Suspect]
     Active Substance: TRAMETINIB DIMETHYL SULFOXIDE
     Indication: Malignant melanoma stage IV
     Dosage: UNK (HALF DOSE)
     Route: 048
  6. MEKINIST [Suspect]
     Active Substance: TRAMETINIB DIMETHYL SULFOXIDE
     Dosage: 2 MG, QD
     Route: 048
     Dates: start: 20171031, end: 20171113
  7. MEKINIST [Suspect]
     Active Substance: TRAMETINIB DIMETHYL SULFOXIDE
     Dosage: 1 DOSAGE FORM, QD
     Route: 048
     Dates: start: 20171031, end: 20171113
  8. LYRICA [Concomitant]
     Active Substance: PREGABALIN
     Indication: Product used for unknown indication
     Dosage: 2 DF, UNK
     Route: 065
  9. DOLIPRANE [Concomitant]
     Active Substance: ACETAMINOPHEN
     Indication: Product used for unknown indication
     Dosage: UNK, PRN (IF NECESSARY)
     Route: 065
  10. PREDNISOLONE [Concomitant]
     Active Substance: PREDNISOLONE
     Indication: Product used for unknown indication
     Dosage: 3 DF, QD
     Route: 065
     Dates: start: 20171113
  11. AUGMENTIN [Concomitant]
     Active Substance: AMOXICILLIN\CLAVULANATE POTASSIUM
     Indication: Product used for unknown indication
     Dosage: 2 DF, QD
     Route: 065
     Dates: start: 20171113
  12. IPILIMUMAB [Concomitant]
     Active Substance: IPILIMUMAB
     Indication: Product used for unknown indication
     Dosage: UNK
     Route: 065
  13. NIVOLUMAB [Concomitant]
     Active Substance: NIVOLUMAB
     Indication: Product used for unknown indication
     Dosage: UNK
     Route: 065
  14. OPDIVO [Concomitant]
     Active Substance: NIVOLUMAB
     Indication: Malignant melanoma stage IV
     Dosage: 1 DOSAGE FORM, SOLUTION A DILUER POUR PERFUSION
     Route: 042
     Dates: start: 20170517, end: 20171018

REACTIONS (10)
  - Haemophagocytic lymphohistiocytosis [Recovered/Resolved]
  - Disseminated intravascular coagulation [Recovered/Resolved]
  - Hepatic cytolysis [Recovered/Resolved]
  - Pruritus [Unknown]
  - Fatigue [Unknown]
  - Acute kidney injury [Recovered/Resolved]
  - Chromaturia [Unknown]
  - Rash maculo-papular [Recovered/Resolved]
  - Pyrexia [Unknown]
  - Rash [Unknown]

NARRATIVE: CASE EVENT DATE: 20171111
